FAERS Safety Report 5592194-X (Version None)
Quarter: 2008Q1

REPORT INFORMATION
  Report Type: 
  Country: None (occurrence: None)
  Receive Date: 20080115
  Receipt Date: 20070920
  Transmission Date: 20080703
  Serious: No
  Sender: FDA-Public Use
  Company Number: US-ABBOTT-07P-163-0417968-00

PATIENT
  Sex: Female
  Weight: 77.18 kg

DRUGS (2)
  1. ADVICOR [Suspect]
     Indication: BLOOD CHOLESTEROL INCREASED
     Route: 048
     Dates: start: 20070720, end: 20070721
  2. GENERIC BUSPAR/HYDROCHLOROTHIAZIDE [Concomitant]
     Indication: BLOOD PRESSURE
     Route: 048

REACTIONS (5)
  - FALL [None]
  - FEELING HOT [None]
  - GENERALISED ERYTHEMA [None]
  - LIP SWELLING [None]
  - TOOTH FRACTURE [None]
